FAERS Safety Report 7841309-9 (Version None)
Quarter: 2011Q4

REPORT INFORMATION
  Report Type: 
  Country: None (occurrence: None)
  Receive Date: 20111025
  Receipt Date: 20111018
  Transmission Date: 20120403
  Serious: Yes (Hospitalization)
  Sender: FDA-Public Use
  Company Number: CH-CEPHALON-2011005470

PATIENT
  Sex: Female

DRUGS (8)
  1. MARCUMAR [Concomitant]
     Dates: start: 20110901
  2. ATORVASTATIN CALCIUM [Concomitant]
  3. TORSEMIDE [Concomitant]
  4. METOPROLOL SUCCINATE [Concomitant]
     Dates: start: 20110901
  5. BENDAMUSTINE HCL [Suspect]
     Indication: LYMPHOMA
     Route: 042
     Dates: start: 20110816
  6. ENALAPRIL MALEATE [Concomitant]
     Dates: start: 20110901
  7. RITUXIMAB [Suspect]
     Indication: LYMPHOMA
     Route: 042
     Dates: start: 20110816
  8. LENALIDOMIDE [Suspect]
     Indication: LYMPHOMA
     Route: 048
     Dates: start: 20110816

REACTIONS (1)
  - CARDIAC PACEMAKER INSERTION [None]
